FAERS Safety Report 6914569-6 (Version None)
Quarter: 2010Q3

REPORT INFORMATION
  Report Type: 
  Country: None (occurrence: None)
  Receive Date: 20100809
  Receipt Date: 20100802
  Transmission Date: 20110219
  Serious: Yes (Other)
  Sender: FDA-Public Use
  Company Number: US-BAYER-201016566NA

PATIENT
  Age: 80 Year
  Sex: Female

DRUGS (3)
  1. ACARBOSE [Suspect]
     Indication: DIABETES MELLITUS
     Route: 048
  2. ACTOS [Suspect]
     Indication: DIABETES MELLITUS
     Route: 048
  3. GLIPIZIDE [Suspect]
     Indication: DIABETES MELLITUS
     Dosage: TOTAL DAILY DOSE: 10 MG
     Route: 048

REACTIONS (2)
  - BLOOD GLUCOSE DECREASED [None]
  - GLAUCOMA [None]
